FAERS Safety Report 18283410 (Version 1)
Quarter: 2020Q3

REPORT INFORMATION
  Report Type: Spontaneous
  Country: NL (occurrence: NL)
  Receive Date: 20200918
  Receipt Date: 20200918
  Transmission Date: 20201103
  Serious: Yes (Other)
  Sender: FDA-Public Use
  Company Number: NL-MYLANLABS-2020M1079849

PATIENT
  Age: 20 Year
  Sex: Female

DRUGS (6)
  1. RISEDRONATE [Suspect]
     Active Substance: RISEDRONATE SODIUM
     Indication: CHRONIC RECURRENT MULTIFOCAL OSTEOMYELITIS
     Dosage: 35 MILLIGRAM, QW
     Route: 048
  2. AMITRIPTYLINE [Suspect]
     Active Substance: AMITRIPTYLINE
     Indication: CHRONIC RECURRENT MULTIFOCAL OSTEOMYELITIS
     Route: 065
  3. PREGABALIN. [Suspect]
     Active Substance: PREGABALIN
     Indication: CHRONIC RECURRENT MULTIFOCAL OSTEOMYELITIS
     Route: 065
  4. CLINDAMYCIN. [Concomitant]
     Active Substance: CLINDAMYCIN
     Indication: BACTERIAL INFECTION
     Dosage: 600 MILLIGRAM, TID
     Route: 048
  5. ADALIMUMAB [Suspect]
     Active Substance: ADALIMUMAB
     Indication: CHRONIC RECURRENT MULTIFOCAL OSTEOMYELITIS
     Dosage: 40 MILLIGRAM(ADMINISTERED TWO?WEEKLY)
     Route: 065
  6. OXYCODONE [Suspect]
     Active Substance: OXYCODONE
     Indication: CHRONIC RECURRENT MULTIFOCAL OSTEOMYELITIS
     Route: 065

REACTIONS (1)
  - Drug ineffective [Unknown]
